FAERS Safety Report 9046858 (Version 1)
Quarter: 2013Q1

REPORT INFORMATION
  Report Type: Spontaneous
  Country: US (occurrence: US)
  Receive Date: 20130204
  Receipt Date: 20130204
  Transmission Date: 20140127
  Serious: No
  Sender: FDA-Public Use
  Company Number: US-009507513-1302USA000533

PATIENT
  Sex: Female

DRUGS (4)
  1. ASMANEX TWISTHALER [Suspect]
     Dosage: 1PUFF, QD
     Route: 048
  2. LEVOTHYROXINE SODIUM [Concomitant]
  3. MONTELUKAST SODIUM [Concomitant]
  4. VERAPAMIL [Concomitant]

REACTIONS (2)
  - Panic attack [Unknown]
  - Product quality issue [Unknown]
